FAERS Safety Report 8284589-0 (Version None)
Quarter: 2012Q2

REPORT INFORMATION
  Report Type: 
  Country: None (occurrence: None)
  Receive Date: 20120413
  Receipt Date: 20110831
  Transmission Date: 20120825
  Serious: No
  Sender: FDA-Public Use
  Company Number: US-ASTRAZENECA-2011SE52685

PATIENT
  Age: 63 Year
  Sex: Female
  Weight: 87.5 kg

DRUGS (9)
  1. LORATADINE [Concomitant]
  2. FISH OIL [Concomitant]
  3. MULTI-VITAMIN [Concomitant]
  4. ZOLOFT [Concomitant]
  5. LISINOPRIL [Suspect]
     Indication: HYPERTENSION
     Route: 048
  6. TOPROL-XL [Suspect]
     Route: 048
  7. RHINOCORT [Concomitant]
  8. NEXIUM [Suspect]
     Route: 048
  9. CALCIUM VITAMIN D [Concomitant]

REACTIONS (4)
  - PAIN [None]
  - ASTHMA [None]
  - HYPERTENSION [None]
  - CHEST PAIN [None]
